FAERS Safety Report 25045938 (Version 2)
Quarter: 2025Q1

REPORT INFORMATION
  Report Type: Report from Study
  Country: CO (occurrence: CO)
  Receive Date: 20250306
  Receipt Date: 20250325
  Transmission Date: 20250408
  Serious: Yes (Hospitalization, Other)
  Sender: BIOVITRUM
  Company Number: CO-AstraZeneca-CH-00816396A

PATIENT
  Age: 3 Month
  Sex: Female
  Weight: 4.2 kg

DRUGS (1)
  1. PALIVIZUMAB [Suspect]
     Active Substance: PALIVIZUMAB
     Indication: Antiviral prophylaxis
     Route: 030
     Dates: start: 20241108

REACTIONS (2)
  - Dyspnoea [Recovering/Resolving]
  - Tracheal obstruction [Recovered/Resolved]

NARRATIVE: CASE EVENT DATE: 20250217
